FAERS Safety Report 6411867-X (Version None)
Quarter: 2009Q4

REPORT INFORMATION
  Report Type: 
  Country: None (occurrence: None)
  Receive Date: 20091020
  Receipt Date: 20091007
  Transmission Date: 20100525
  Serious: Yes (Hospitalization)
  Sender: FDA-Public Use
  Company Number: 2009AC000169

PATIENT
  Age: 61 Year
  Sex: Female

DRUGS (25)
  1. DIGOXIN [Suspect]
     Indication: CARDIAC FAILURE CONGESTIVE
     Dosage: 0.125 MG; PO
     Route: 048
  2. DILTIAZ [Concomitant]
  3. ALBUTEROL [Concomitant]
  4. FUROSEMIDE [Concomitant]
  5. KLOR-CON [Concomitant]
  6. LISINOPRIL [Concomitant]
  7. ADVAIR DISKUS 100/50 [Concomitant]
  8. DILTIAZEM [Concomitant]
  9. ZESTRIL [Concomitant]
  10. MECAVOR [Concomitant]
  11. K-DUR [Concomitant]
  12. NITROGLYCERIN [Concomitant]
  13. COUMADIN [Concomitant]
  14. FLUCONAZOLE [Concomitant]
  15. VERAPAMIL [Concomitant]
  16. ACTONEL [Concomitant]
  17. PROAIR HFA [Concomitant]
  18. SPIRIVA [Concomitant]
  19. MEDROL [Concomitant]
  20. VENTOLIN [Concomitant]
  21. FOLIC ACID [Concomitant]
  22. ACTONEL [Concomitant]
  23. ALBUTEROL [Concomitant]
  24. ACETAMINOPHEN AND HYDROCODONE BITARTRATE [Concomitant]
  25. FUROSEMIDE [Concomitant]

REACTIONS (22)
  - ANHEDONIA [None]
  - ANXIETY [None]
  - ATRIAL FIBRILLATION [None]
  - CELLULITIS [None]
  - CHEST PAIN [None]
  - COUGH [None]
  - DYSPNOEA [None]
  - FEELING OF BODY TEMPERATURE CHANGE [None]
  - HAEMATOCHEZIA [None]
  - HEART RATE IRREGULAR [None]
  - ILL-DEFINED DISORDER [None]
  - INCORRECT DOSE ADMINISTERED [None]
  - LEFT VENTRICULAR DYSFUNCTION [None]
  - MULTIPLE INJURIES [None]
  - NASOPHARYNGITIS [None]
  - NAUSEA [None]
  - OEDEMA PERIPHERAL [None]
  - PAIN [None]
  - PALPITATIONS [None]
  - PULMONARY OEDEMA [None]
  - PYREXIA [None]
  - THERAPEUTIC AGENT TOXICITY [None]
